FAERS Safety Report 17416794 (Version 1)
Quarter: 2020Q1

REPORT INFORMATION
  Report Type: Spontaneous
  Country: CA (occurrence: CA)
  Receive Date: 20200214
  Receipt Date: 20200214
  Transmission Date: 20200409
  Serious: Yes (Other)
  Sender: FDA-Public Use
  Company Number: CA-TEVA-2020-CA-1183424

PATIENT
  Sex: Female

DRUGS (5)
  1. METROGEL [Concomitant]
     Active Substance: METRONIDAZOLE
     Route: 061
  2. ESOMEPRAZOLE SODIUM. [Concomitant]
     Active Substance: ESOMEPRAZOLE SODIUM
     Indication: ABDOMINAL DISCOMFORT
  3. GRAVOL [Concomitant]
     Active Substance: DIMENHYDRINATE
     Indication: ACNE
     Dosage: 1 DOSAGE FORMS DAILY;
     Route: 048
  4. MORPHINE SULFATE. [Suspect]
     Active Substance: MORPHINE SULFATE
     Indication: PRODUCT USED FOR UNKNOWN INDICATION
     Route: 065
  5. XELJANZ [Suspect]
     Active Substance: TOFACITINIB CITRATE
     Indication: RHEUMATOID ARTHRITIS
     Dosage: 10 MILLIGRAM DAILY;
     Route: 048

REACTIONS (7)
  - Haematochezia [Unknown]
  - Clostridium difficile infection [Unknown]
  - Dry mouth [Unknown]
  - Hypertension [Unknown]
  - Swelling [Unknown]
  - Skin discolouration [Unknown]
  - Mucous stools [Unknown]
